FAERS Safety Report 7713893-7 (Version None)
Quarter: 2011Q3

REPORT INFORMATION
  Report Type: 
  Country: None (occurrence: None)
  Receive Date: 20110826
  Receipt Date: 20110812
  Transmission Date: 20111222
  Serious: Yes (Hospitalization, Other)
  Sender: FDA-Public Use
  Company Number: CA-GENENTECH-289996

PATIENT
  Sex: Female
  Weight: 61.2 kg

DRUGS (9)
  1. SINGULAIR [Concomitant]
     Indication: PRODUCT USED FOR UNKNOWN INDICATION
  2. ANTIHYPERTENSIVE [Concomitant]
     Indication: PRODUCT USED FOR UNKNOWN INDICATION
     Dosage: UNK
     Dates: start: 20101219, end: 20101226
  3. AVELOX [Concomitant]
     Indication: PRODUCT USED FOR UNKNOWN INDICATION
  4. OMALIZUMAB [Suspect]
     Indication: ASTHMA
     Dosage: 300 MG, 1/MONTH
     Route: 058
     Dates: start: 20050727
  5. SYMBICORT [Concomitant]
     Indication: PRODUCT USED FOR UNKNOWN INDICATION
  6. OMALIZUMAB [Suspect]
     Dosage: UNK UNK, UNKNOWN
     Route: 065
     Dates: start: 20101130
  7. FOSAMAX [Concomitant]
     Indication: PRODUCT USED FOR UNKNOWN INDICATION
  8. LEVAQUIN [Concomitant]
     Indication: PRODUCT USED FOR UNKNOWN INDICATION
  9. HYDROCHLOROTHIAZIDE [Concomitant]
     Indication: PRODUCT USED FOR UNKNOWN INDICATION

REACTIONS (8)
  - VIRAL INFECTION [None]
  - LUNG INFECTION [None]
  - BLOOD PRESSURE INCREASED [None]
  - LOWER RESPIRATORY TRACT INFECTION [None]
  - LARYNGITIS [None]
  - RHINORRHOEA [None]
  - ASTHMA [None]
  - HYPERSENSITIVITY [None]
